FAERS Safety Report 16815795 (Version 1)
Quarter: 2019Q3

REPORT INFORMATION
  Report Type: Spontaneous
  Country: FR (occurrence: FR)
  Receive Date: 20190917
  Receipt Date: 20190917
  Transmission Date: 20191005
  Serious: Yes (Other)
  Sender: FDA-Public Use
  Company Number: FR-US-PROVELL PHARMACEUTICALS LLC-E2B_90069582

PATIENT
  Age: 46 Year
  Sex: Female

DRUGS (2)
  1. KETAMINE [Suspect]
     Active Substance: KETAMINE
     Indication: INDUCTION AND MAINTENANCE OF ANAESTHESIA
     Dosage: HIGH DOSE (HIGHER DOSE THAN RECOMMENDED FOR HER WEIGHT)
     Dates: start: 201907
  2. LEVOTHYROX 50 NF [Suspect]
     Active Substance: LEVOTHYROXINE
     Indication: POST PROCEDURAL HYPOTHYROIDISM
     Dates: start: 20190717, end: 20190720

REACTIONS (6)
  - Amnesia [Recovered/Resolved]
  - Confusional state [Recovered/Resolved]
  - Mental impairment [Recovered/Resolved]
  - Vertigo [Recovered/Resolved]
  - Emotional disorder [Recovered/Resolved]
  - Disturbance in attention [Recovered/Resolved]

NARRATIVE: CASE EVENT DATE: 20190718
